FAERS Safety Report 20176708 (Version 7)
Quarter: 2025Q1

REPORT INFORMATION
  Report Type: Report from Study
  Country: ES (occurrence: ES)
  Receive Date: 20211213
  Receipt Date: 20250326
  Transmission Date: 20250409
  Serious: Yes (Hospitalization, Other)
  Sender: TAKEDA
  Company Number: ES-TAKEDA-ES202010371

PATIENT
  Age: 48 Year
  Sex: Male
  Weight: 66 kg

DRUGS (15)
  1. TEDUGLUTIDE [Suspect]
     Active Substance: TEDUGLUTIDE
     Indication: Short-bowel syndrome
     Dosage: 3.2 MILLIGRAM, QD
     Dates: start: 20180209
  2. TEDUGLUTIDE [Suspect]
     Active Substance: TEDUGLUTIDE
  3. TEDUGLUTIDE [Suspect]
     Active Substance: TEDUGLUTIDE
  4. TEDUGLUTIDE [Suspect]
     Active Substance: TEDUGLUTIDE
  5. METAMIZOL [Concomitant]
     Active Substance: METAMIZOLE SODIUM
     Indication: Renal colic
     Dosage: 575 MILLIGRAM, TID
     Dates: start: 20210407, end: 20210412
  6. DEXKETOPROFEN TROMETAMOL [Concomitant]
     Active Substance: DEXKETOPROFEN TROMETAMOL
     Indication: Renal colic
     Dosage: 25 MILLIGRAM, TID
     Dates: start: 20210407, end: 20210412
  7. OMEPRAZOLE [Concomitant]
     Active Substance: OMEPRAZOLE
     Indication: Dyspepsia
     Dosage: 20 MILLIGRAM, QD
     Dates: start: 20210114
  8. OMEPRAZOLE [Concomitant]
     Active Substance: OMEPRAZOLE
     Indication: Eosinophilic oesophagitis
     Dosage: 20 MILLIGRAM, BID
     Dates: start: 20210604, end: 202206
  9. OMEPRAZOLE [Concomitant]
     Active Substance: OMEPRAZOLE
     Dosage: 40 MILLIGRAM, BID
     Dates: start: 202206
  10. CHOLECALCIFEROL [Concomitant]
     Active Substance: CHOLECALCIFEROL
     Indication: Prophylaxis
     Dosage: 1 INTERNATIONAL UNIT, BID
     Dates: start: 20200625
  11. ZINC SULFATE [Concomitant]
     Active Substance: ZINC SULFATE
     Indication: Prophylaxis
     Dosage: 50 MILLIGRAM, QOD
     Dates: start: 20030320
  12. FLAGYL [Concomitant]
     Active Substance: METRONIDAZOLE\METRONIDAZOLE HYDROCHLORIDE
     Indication: Bacterial infection
  13. FOLIC ACID [Concomitant]
     Active Substance: FOLIC ACID
     Indication: Prophylaxis
     Dosage: 5 MILLIGRAM, QOD
     Dates: start: 20171114
  14. DILTIAZEM [Concomitant]
     Active Substance: DILTIAZEM
     Indication: Proctalgia
     Dosage: UNK UNK, BID
     Route: 061
     Dates: start: 20231215
  15. CYANOCOBALAMIN [Concomitant]
     Active Substance: CYANOCOBALAMIN
     Indication: Prophylaxis

REACTIONS (2)
  - Nephrolithiasis [Recovered/Resolved]
  - Renal colic [Recovered/Resolved]

NARRATIVE: CASE EVENT DATE: 20191011
